FAERS Safety Report 5509439-4 (Version None)
Quarter: 2007Q4

REPORT INFORMATION
  Report Type: 
  Country: None (occurrence: None)
  Receive Date: 20071106
  Receipt Date: 20071030
  Transmission Date: 20080405
  Serious: Yes (Death)
  Sender: FDA-Public Use
  Company Number: 020181

PATIENT
  Age: 69 Year
  Sex: Male

DRUGS (3)
  1. METHOTREXATE [Suspect]
     Indication: RHEUMATOID ARTHRITIS
  2. HUMIRA [Suspect]
     Indication: RHEUMATOID ARTHRITIS
     Dates: start: 20070801
  3. SULFA() [Suspect]
     Dosage: INTRAVENOUS
     Route: 042

REACTIONS (8)
  - CONDITION AGGRAVATED [None]
  - DYSPNOEA [None]
  - GENERAL PHYSICAL HEALTH DETERIORATION [None]
  - IMMUNODEFICIENCY [None]
  - INTERSTITIAL LUNG DISEASE [None]
  - NASOPHARYNGITIS [None]
  - OXYGEN SATURATION DECREASED [None]
  - VIRAL INFECTION [None]
